FAERS Safety Report 21871579 (Version 1)
Quarter: 2023Q1

REPORT INFORMATION
  Report Type: Spontaneous
  Country: CN (occurrence: CN)
  Receive Date: 20230117
  Receipt Date: 20230117
  Transmission Date: 20230418
  Serious: Yes (Hospitalization)
  Sender: FDA-Public Use
  Company Number: CN-PFIZER INC-PV202300008549

PATIENT
  Age: 23 Year
  Sex: Female
  Weight: 44 kg

DRUGS (2)
  1. METHOTREXATE SODIUM [Suspect]
     Active Substance: METHOTREXATE SODIUM
     Indication: Therapeutic procedure
     Dosage: 20 MG, 1X/DAY
     Route: 042
     Dates: start: 20221230, end: 20230103
  2. DOXYCYCLINE HYCLATE [Concomitant]
     Active Substance: DOXYCYCLINE HYCLATE
     Indication: Antiinflammatory therapy
     Dosage: 1 DF, 2X/DAY
     Route: 048
     Dates: start: 20230102, end: 20230106

REACTIONS (4)
  - Hepatocellular injury [Recovering/Resolving]
  - Dermatitis allergic [Recovering/Resolving]
  - Mycoplasma test positive [Recovering/Resolving]
  - Off label use [Unknown]

NARRATIVE: CASE EVENT DATE: 20221230
